FAERS Safety Report 13614759 (Version 1)
Quarter: 2017Q2

REPORT INFORMATION
  Report Type: Spontaneous
  Country: FR (occurrence: FR)
  Receive Date: 20170606
  Receipt Date: 20170606
  Transmission Date: 20170830
  Serious: Yes (Other)
  Sender: FDA-Public Use
  Company Number: FR-ASTRAZENECA-2017SE57862

PATIENT
  Age: 52 Year
  Sex: Female

DRUGS (4)
  1. CYMBALTA [Suspect]
     Active Substance: DULOXETINE HYDROCHLORIDE
     Indication: DEPRESSION
     Dosage: 30-60 MG DAILY
     Route: 048
     Dates: start: 20160318
  2. TERALITHE [Suspect]
     Active Substance: LITHIUM CARBONATE
     Indication: BIPOLAR DISORDER
     Route: 048
     Dates: start: 20151224
  3. INEXIUM [Suspect]
     Active Substance: ESOMEPRAZOLE
     Route: 048
  4. CARDENSIEL [Suspect]
     Active Substance: BISOPROLOL FUMARATE
     Route: 048

REACTIONS (1)
  - Tooth erosion [Unknown]
